FAERS Safety Report 14825641 (Version 1)
Quarter: 2018Q2

REPORT INFORMATION
  Report Type: Report from Study
  Country: None (occurrence: RO)
  Receive Date: 20180430
  Receipt Date: 20180430
  Transmission Date: 20180711
  Serious: Yes (Hospitalization)
  Sender: FDA-Public Use
  Company Number: RO-ABBVIE-18K-135-2337915-00

PATIENT
  Age: 51 Year
  Sex: Female

DRUGS (3)
  1. KETONAL [Concomitant]
     Active Substance: KETOPROFEN
     Indication: ARTHRALGIA
     Dosage: AS NEEDED?START DATE TEXT: BEFORE ABBVIE TRT
     Route: 048
  2. HUMIRA [Suspect]
     Active Substance: ADALIMUMAB
     Indication: RHEUMATOID ARTHRITIS
     Route: 058
     Dates: start: 20131115
  3. INDOMETACIN [Concomitant]
     Active Substance: INDOMETHACIN
     Indication: ARTHRALGIA
     Dosage: AS NEEDED?START DATE TEXT: BEFORE ABBVIE TRT
     Route: 048

REACTIONS (1)
  - Joint effusion [Recovering/Resolving]

NARRATIVE: CASE EVENT DATE: 20180424
